FAERS Safety Report 7105036-8 (Version None)
Quarter: 2010Q4

REPORT INFORMATION
  Report Type: 
  Country: None (occurrence: None)
  Receive Date: 20101116
  Receipt Date: 20101111
  Transmission Date: 20110411
  Serious: Yes (Death, Hospitalization)
  Sender: FDA-Public Use
  Company Number: PHFR2010IE02305

PATIENT
  Sex: Male

DRUGS (12)
  1. CLOZARIL [Suspect]
     Dosage: 100 MG MANE AND 200 MG NOCTE
     Route: 048
     Dates: start: 20080926
  2. LANSOPRAZOLE [Concomitant]
     Dosage: 30 MG, QD
  3. CALCICHEW D3 [Concomitant]
     Dosage: 1 DF, BID
  4. MIDODRINE HYDROCHLORIDE [Concomitant]
     Dosage: 10 MG, TID
  5. SERTRALINE HYDROCHLORIDE [Concomitant]
     Dosage: 200 MG, MANE
  6. DIGOXIN [Concomitant]
     Dosage: 0.125 MG, QD
  7. RISPERIDONE [Concomitant]
     Dosage: 2 MG, QD
  8. LAMOTRIGINE [Concomitant]
     Dosage: 200 MG, NOCTE
  9. ALENDRONATE SODIUM [Concomitant]
     Dosage: 70 MG, QW
  10. CALOGEN                                 /IRE/ [Concomitant]
     Dosage: 30 MG, TID
  11. ASPIRIN [Concomitant]
     Dosage: 150 MG, MANE
  12. LACTULOSE [Concomitant]
     Dosage: 10 ML, TID

REACTIONS (10)
  - CARDIAC ARREST [None]
  - CIRCULATORY COLLAPSE [None]
  - COUGH [None]
  - DYSPNOEA [None]
  - GENERAL PHYSICAL HEALTH DETERIORATION [None]
  - MALAISE [None]
  - PNEUMONIA [None]
  - PYREXIA [None]
  - TACHYCARDIA [None]
  - URINARY TRACT INFECTION [None]
